FAERS Safety Report 7125771-5 (Version None)
Quarter: 2010Q4

REPORT INFORMATION
  Report Type: 
  Country: None (occurrence: None)
  Receive Date: 20101129
  Receipt Date: 20101122
  Transmission Date: 20110411
  Serious: Yes (Life-Threatening)
  Sender: FDA-Public Use
  Company Number: B0685461A

PATIENT
  Sex: Female

DRUGS (5)
  1. CEFUROXIME [Suspect]
     Indication: INFECTION PROPHYLAXIS
     Dosage: 1.5G PER DAY
     Route: 042
     Dates: start: 20101019, end: 20101019
  2. SERETIDE [Concomitant]
     Route: 055
  3. LEVOTHYROXINE SODIUM [Concomitant]
     Dosage: 75MCG PER DAY
     Route: 048
  4. PROGESTERON [Concomitant]
     Route: 048
  5. MIZOLLEN [Concomitant]
     Route: 048

REACTIONS (4)
  - ANAPHYLACTIC SHOCK [None]
  - BLOOD PRESSURE DECREASED [None]
  - HYPOTHERMIA [None]
  - TACHYCARDIA [None]
